FAERS Safety Report 24840477 (Version 1)
Quarter: 2025Q1

REPORT INFORMATION
  Report Type: Spontaneous
  Country: US (occurrence: None)
  Receive Date: 20250113
  Receipt Date: 20250113
  Transmission Date: 20250409
  Serious: Yes (Life-Threatening, Other)
  Sender: FDA-CTU
  Company Number: None

PATIENT
  Age: 64 Year
  Sex: Female
  Weight: 95.4 kg

DRUGS (9)
  1. TRULICITY [Suspect]
     Active Substance: DULAGLUTIDE
     Indication: Glycosylated haemoglobin increased
     Route: 050
     Dates: start: 20220920, end: 20230125
  2. AMLODIPINE [Concomitant]
     Active Substance: AMLODIPINE BESYLATE
  3. GABAPENTIN [Concomitant]
     Active Substance: GABAPENTIN
  4. ADVIL [Concomitant]
     Active Substance: IBUPROFEN
  5. PROBIOTICS NOS [Concomitant]
     Active Substance: PROBIOTICS NOS
  6. DIETARY SUPPLEMENT [Concomitant]
     Active Substance: DIETARY SUPPLEMENT
  7. MOLYBDENUM [Concomitant]
     Active Substance: MOLYBDENUM
  8. MCT oil [Concomitant]
  9. VALERIAN [Concomitant]
     Active Substance: VALERIAN

REACTIONS (4)
  - Amnesia [None]
  - Subdural haematoma [None]
  - Osteomyelitis [None]
  - Procedural failure [None]

NARRATIVE: CASE EVENT DATE: 20230125
